FAERS Safety Report 21283091 (Version 1)
Quarter: 2022Q3

REPORT INFORMATION
  Report Type: Report from Study
  Country: US (occurrence: US)
  Receive Date: 20220901
  Receipt Date: 20220901
  Transmission Date: 20221026
  Serious: Yes (Death, Disabling)
  Sender: FDA-Public Use
  Company Number: US-Taiho Oncology Inc-EU-2022-01763

PATIENT
  Age: 68 Year
  Sex: Male
  Weight: 76.2 kg

DRUGS (1)
  1. LONSURF [Suspect]
     Active Substance: TIPIRACIL HYDROCHLORIDE\TRIFLURIDINE
     Indication: Colon cancer
     Dosage: CYCLE UNKNOWN
     Route: 048
     Dates: start: 20220613, end: 20220618

REACTIONS (2)
  - Death [Fatal]
  - Bedridden [Unknown]

NARRATIVE: CASE EVENT DATE: 20220616
